FAERS Safety Report 25988867 (Version 1)
Quarter: 2025Q4

REPORT INFORMATION
  Report Type: Spontaneous
  Country: CN (occurrence: CN)
  Receive Date: 20251103
  Receipt Date: 20251103
  Transmission Date: 20260117
  Serious: Yes (Hospitalization)
  Sender: MERCK SHARP & DOHME LLC
  Company Number: CN-009507513-2344768

PATIENT
  Age: 53 Year
  Sex: Male
  Weight: 74.5 kg

DRUGS (3)
  1. SITAGLIPTIN PHOSPHATE [Suspect]
     Active Substance: SITAGLIPTIN PHOSPHATE
     Indication: Blood glucose abnormal
     Route: 048
     Dates: start: 20200901, end: 20250228
  2. ACARBOSE [Suspect]
     Active Substance: ACARBOSE
     Indication: Blood glucose abnormal
     Dosage: TIME INTERVAL: 0.33333333 DAYS
     Route: 048
     Dates: start: 20250201, end: 20250630
  3. Metformin Empagliflozin Tablets (I) [Concomitant]
     Indication: Blood glucose abnormal
     Dosage: 1 TABLET, QD
     Route: 048
     Dates: start: 20250901, end: 20251022

REACTIONS (5)
  - Lipase increased [Recovering/Resolving]
  - Diarrhoea [Recovering/Resolving]
  - Blood glucose fluctuation [Unknown]
  - Lipase increased [Recovered/Resolved]
  - Magnetic resonance imaging abnormal [Unknown]

NARRATIVE: CASE EVENT DATE: 20250101
